FAERS Safety Report 8379112-6 (Version None)
Quarter: 2012Q2

REPORT INFORMATION
  Report Type: 
  Country: None (occurrence: None)
  Receive Date: 20120523
  Receipt Date: 20120515
  Transmission Date: 20120825
  Serious: Yes (Other)
  Sender: FDA-Public Use
  Company Number: BR-ACCORD-013537

PATIENT
  Age: 53 Year
  Sex: Female
  Weight: 59 kg

DRUGS (4)
  1. PACLITAXEL [Suspect]
     Indication: BREAST CANCER
     Route: 042
     Dates: start: 20120509, end: 20120509
  2. RANITIDINE [Concomitant]
     Route: 042
     Dates: start: 20120509, end: 20120509
  3. ZOFRAN [Concomitant]
     Route: 042
     Dates: start: 20120509, end: 20120509
  4. DEXAMETHASONE [Concomitant]
     Route: 042
     Dates: start: 20120509, end: 20120509

REACTIONS (2)
  - DYSPNOEA [None]
  - ERYTHEMA [None]
